FAERS Safety Report 19484463 (Version 2)
Quarter: 2021Q3

REPORT INFORMATION
  Report Type: Spontaneous
  Country: SG (occurrence: SG)
  Receive Date: 20210701
  Receipt Date: 20210720
  Transmission Date: 20211014
  Serious: Yes (Other)
  Sender: FDA-Public Use
  Company Number: SG-INCYTE CORPORATION-2021IN005668

PATIENT

DRUGS (3)
  1. PEGASYS [Concomitant]
     Active Substance: PEGINTERFERON ALFA-2A
     Indication: POLYCYTHAEMIA VERA
     Dosage: 135 UG (EVERY 5?7 DAYS)
     Route: 065
     Dates: start: 20190312, end: 20210531
  2. ASPIRIN [ACETYLSALICYLIC ACID] [Concomitant]
     Active Substance: ASPIRIN
     Indication: PRODUCT USED FOR UNKNOWN INDICATION
     Dosage: 100 MG, QD (OM, LONG TERM)
     Route: 065
     Dates: start: 2018
  3. JAKAVI [Suspect]
     Active Substance: RUXOLITINIB
     Indication: POLYCYTHAEMIA VERA
     Dosage: 10 MG, BID
     Route: 048
     Dates: start: 20180727, end: 20200213

REACTIONS (2)
  - Hypogonadism [Unknown]
  - Oligospermia [Unknown]

NARRATIVE: CASE EVENT DATE: 202105
